FAERS Safety Report 10674602 (Version 1)
Quarter: 2014Q4

REPORT INFORMATION
  Report Type: Spontaneous
  Country: US (occurrence: US)
  Receive Date: 20141224
  Receipt Date: 20141224
  Transmission Date: 20150529
  Serious: Yes (Other)
  Sender: FDA-Public Use
  Company Number: US-ACTAVIS-2014-27057

PATIENT
  Age: 44 Year
  Sex: Female

DRUGS (4)
  1. PACLITAXEL (ATLLC) [Suspect]
     Active Substance: PACLITAXEL
     Indication: OVARIAN ENDOMETRIOID CARCINOMA
     Dosage: 175 MG/M2, CYCLICAL
     Route: 065
  2. PACLITAXEL (ATLLC) [Suspect]
     Active Substance: PACLITAXEL
     Indication: OVARIAN CLEAR CELL CARCINOMA
  3. CARBOPLATIN. [Concomitant]
     Active Substance: CARBOPLATIN
     Indication: OVARIAN CLEAR CELL CARCINOMA
  4. CARBOPLATIN. [Concomitant]
     Active Substance: CARBOPLATIN
     Indication: OVARIAN ENDOMETRIOID CARCINOMA
     Dosage: UNK, CYCLICAL
     Route: 065

REACTIONS (1)
  - Paraesthesia [Recovered/Resolved]
